FAERS Safety Report 17631646 (Version 1)
Quarter: 2020Q2

REPORT INFORMATION
  Report Type: Spontaneous
  Country: US (occurrence: US)
  Receive Date: 20200406
  Receipt Date: 20200406
  Transmission Date: 20200713
  Serious: No
  Sender: FDA-Public Use
  Company Number: US-VERTEX PHARMACEUTICALS-2020-007561

PATIENT
  Age: 24 Year
  Sex: Female

DRUGS (1)
  1. TRIKAFTA [Suspect]
     Active Substance: ELEXACAFTOR\IVACAFTOR\TEZACAFTOR
     Indication: CYSTIC FIBROSIS
     Dosage: 100-150-75/50MG, BID
     Route: 048
     Dates: start: 202001

REACTIONS (4)
  - Rhinorrhoea [Unknown]
  - Oropharyngeal pain [Unknown]
  - Sneezing [Unknown]
  - Nasal congestion [Unknown]

NARRATIVE: CASE EVENT DATE: 20200114
